FAERS Safety Report 15767241 (Version 1)
Quarter: 2018Q4

REPORT INFORMATION
  Report Type: Spontaneous
  Country: US (occurrence: US)
  Receive Date: 20181227
  Receipt Date: 20181227
  Transmission Date: 20190205
  Serious: Yes (Other)
  Sender: FDA-Public Use
  Company Number: US-PFIZER INC-2018528204

PATIENT
  Age: 73 Year
  Sex: Male
  Weight: 112.94 kg

DRUGS (3)
  1. RIFAMPIN. [Suspect]
     Active Substance: RIFAMPIN
     Indication: STAPHYLOCOCCAL INFECTION
     Dosage: UNK
  2. MINOCYCLINE [Suspect]
     Active Substance: MINOCYCLINE\MINOCYCLINE HYDROCHLORIDE
     Indication: STAPHYLOCOCCAL INFECTION
     Dosage: UNK
  3. VANCOMYCIN HCL [Suspect]
     Active Substance: VANCOMYCIN HYDROCHLORIDE
     Indication: STAPHYLOCOCCAL INFECTION
     Dosage: UNK

REACTIONS (3)
  - Peripheral swelling [Unknown]
  - Staphylococcal infection [Unknown]
  - Disease recurrence [Unknown]
